FAERS Safety Report 18640644 (Version 3)
Quarter: 2020Q4

REPORT INFORMATION
  Report Type: Report from Study
  Country: None (occurrence: DE)
  Receive Date: 20201221
  Receipt Date: 20201231
  Transmission Date: 20210114
  Serious: Yes (Hospitalization)
  Sender: FDA-Public Use
  Company Number: DE-ABBVIE-20K-062-3670578-00

PATIENT
  Age: 71 Year
  Sex: Male

DRUGS (2)
  1. DUODOPA [Suspect]
     Active Substance: CARBIDOPA\LEVODOPA
     Dosage: MD 10 ML; CRD 3 ML/H; ED 1.7 ML
     Route: 050
     Dates: start: 2020
  2. DUODOPA [Suspect]
     Active Substance: CARBIDOPA\LEVODOPA
     Indication: PARKINSON^S DISEASE
     Dosage: MD: 10 ML; CRD: 3.2 ML/H; ED: 1.7 ML
     Route: 050
     Dates: start: 20201013, end: 2020

REACTIONS (5)
  - SARS-CoV-2 test positive [Recovered/Resolved]
  - Parkinson^s disease [Not Recovered/Not Resolved]
  - Pyrexia [Recovered/Resolved]
  - Myocarditis [Recovered/Resolved]
  - Pneumonia [Not Recovered/Not Resolved]

NARRATIVE: CASE EVENT DATE: 2020
